FAERS Safety Report 5893743-4 (Version None)
Quarter: 2008Q3

REPORT INFORMATION
  Report Type: 
  Country: None (occurrence: None)
  Receive Date: 20080918
  Receipt Date: 20080904
  Transmission Date: 20090109
  Serious: Yes (Hospitalization)
  Sender: FDA-Public Use
  Company Number: KR-JNJFOC-20080806519

PATIENT
  Age: 71 Year
  Sex: Male
  Weight: 55 kg

DRUGS (2)
  1. DECITABINE (DECITABINE) LYOPHILIZED POWDER [Suspect]
     Indication: MYELODYSPLASTIC SYNDROME
     Dosage: 33 MG, 1 IN 1 DAY, INTRAVENOUS; 25 MG, 1 IN 1 DAY, INTRAVENOUS
     Route: 042
     Dates: start: 20080707, end: 20080711
  2. DECITABINE (DECITABINE) LYOPHILIZED POWDER [Suspect]
     Indication: MYELODYSPLASTIC SYNDROME
     Dosage: 33 MG, 1 IN 1 DAY, INTRAVENOUS; 25 MG, 1 IN 1 DAY, INTRAVENOUS
     Route: 042
     Dates: start: 20080807, end: 20080813

REACTIONS (4)
  - HAEMATOTOXICITY [None]
  - HAEMOGLOBIN DECREASED [None]
  - LEUKOPENIA [None]
  - PAROTITIS [None]
